FAERS Safety Report 12205600 (Version 2)
Quarter: 2016Q2

REPORT INFORMATION
  Report Type: Spontaneous
  Country: GR (occurrence: GR)
  Receive Date: 20160323
  Receipt Date: 20160406
  Transmission Date: 20160815
  Serious: Yes (Other)
  Sender: FDA-Public Use
  Company Number: GR-ELI_LILLY_AND_COMPANY-GR201603005939

PATIENT
  Age: 67 Year
  Sex: Female

DRUGS (2)
  1. FUROLIN [Concomitant]
     Indication: CYSTITIS
     Dosage: UNK UNK, UNKNOWN
     Route: 048
  2. FORSTEO [Suspect]
     Active Substance: TERIPARATIDE
     Indication: OSTEOPOROSIS
     Dosage: 20 UG, QD
     Route: 058
     Dates: start: 201510

REACTIONS (2)
  - Deep vein thrombosis [Recovered/Resolved]
  - Foot fracture [Unknown]

NARRATIVE: CASE EVENT DATE: 20160226
